FAERS Safety Report 7237419-X (Version None)
Quarter: 2011Q1

REPORT INFORMATION
  Report Type: 
  Country: None (occurrence: None)
  Receive Date: 20110121
  Receipt Date: 20110111
  Transmission Date: 20110831
  Serious: Yes (Hospitalization, Other)
  Sender: FDA-Public Use
  Company Number: US-JNJFOC-20110102932

PATIENT
  Age: 14 Year
  Sex: Female

DRUGS (6)
  1. INFLIXIMAB, RECOMBINANT [Suspect]
     Route: 042
  2. INFLIXIMAB, RECOMBINANT [Suspect]
     Route: 042
  3. METHOTREXATE [Concomitant]
     Indication: CROHN'S DISEASE
  4. PREDNISONE [Concomitant]
     Indication: CROHN'S DISEASE
  5. METHOTREXATE [Concomitant]
  6. INFLIXIMAB, RECOMBINANT [Suspect]
     Indication: CROHN'S DISEASE
     Route: 042

REACTIONS (7)
  - HISTOPLASMOSIS [None]
  - DECREASED APPETITE [None]
  - WEIGHT DECREASED [None]
  - ABDOMINAL PAIN [None]
  - FATIGUE [None]
  - FEMALE GENITAL TRACT FISTULA [None]
  - PYREXIA [None]
